FAERS Safety Report 7737579-8 (Version None)
Quarter: 2011Q3

REPORT INFORMATION
  Report Type: 
  Country: None (occurrence: None)
  Receive Date: 20110908
  Receipt Date: 20110902
  Transmission Date: 20111222
  Serious: Yes (Other)
  Sender: FDA-Public Use
  Company Number: GB-MERCK-1109GBR00030

PATIENT
  Age: 76 Year
  Sex: Male

DRUGS (17)
  1. ASPIRIN [Suspect]
     Route: 065
     Dates: start: 20110517
  2. FLECAINIDE ACETATE [Concomitant]
     Route: 065
     Dates: start: 20110704
  3. COZAAR [Suspect]
     Route: 048
     Dates: start: 20110713
  4. SENNA [Suspect]
     Route: 065
  5. PROSCAR [Suspect]
     Route: 048
     Dates: start: 20110810
  6. PROSCAR [Suspect]
     Route: 048
     Dates: start: 20100219
  7. PROSCAR [Suspect]
     Route: 048
     Dates: start: 20110713
  8. PROSCAR [Suspect]
     Route: 048
     Dates: start: 20100414
  9. PROSCAR [Suspect]
     Route: 048
     Dates: start: 20100616
  10. PROSCAR [Suspect]
     Route: 048
     Dates: start: 20100519
  11. PROSCAR [Suspect]
     Route: 048
     Dates: start: 20100119
  12. PROSCAR [Suspect]
     Route: 048
     Dates: start: 20091127
  13. PROSCAR [Suspect]
     Route: 048
     Dates: start: 20091229
  14. CANDESARTAN [Suspect]
     Route: 065
  15. ZOCOR [Suspect]
     Route: 048
     Dates: start: 20110704
  16. TAMSULOSIN HCL [Suspect]
     Route: 065
  17. PROSCAR [Suspect]
     Route: 048
     Dates: start: 20100323

REACTIONS (7)
  - DRUG INTERACTION [None]
  - ATRIOVENTRICULAR BLOCK FIRST DEGREE [None]
  - HAEMATURIA [None]
  - LOSS OF CONSCIOUSNESS [None]
  - VENTRICULAR EXTRASYSTOLES [None]
  - DIZZINESS POSTURAL [None]
  - HEART VALVE INCOMPETENCE [None]
